FAERS Safety Report 24434405 (Version 3)
Quarter: 2025Q1

REPORT INFORMATION
  Report Type: Spontaneous
  Country: US (occurrence: US)
  Receive Date: 20241014
  Receipt Date: 20250107
  Transmission Date: 20250409
  Serious: No
  Sender: PFIZER
  Company Number: US-PFIZER INC-PV202400118505

PATIENT
  Age: 86 Year
  Sex: Female

DRUGS (3)
  1. TUKYSA [Suspect]
     Active Substance: TUCATINIB
     Dosage: 250 MG, 2X/DAY (COMBINATION OF 50 MG (2 TABLETS) AND 150 MG TAB)
  2. TUKYSA [Suspect]
     Active Substance: TUCATINIB
     Dosage: 400 MG, (150MG; 2 TABLETS TWICE DAILY AND 50MG; 2 TABLETS TWICE DAILY)
  3. TUKYSA [Suspect]
     Active Substance: TUCATINIB
     Dosage: 250 MG, 2X/DAY (TAKE ONE 150MG TABLET AND THEN TWO 50MG)
     Route: 048
     Dates: end: 20241121

REACTIONS (4)
  - Neoplasm progression [Unknown]
  - Off label use [Unknown]
  - Dizziness [Unknown]
  - Diarrhoea [Recovering/Resolving]
